FAERS Safety Report 7906081-2 (Version None)
Quarter: 2011Q4

REPORT INFORMATION
  Report Type: 
  Country: None (occurrence: None)
  Receive Date: 20111110
  Receipt Date: 20111108
  Transmission Date: 20120403
  Serious: Yes (Hospitalization)
  Sender: FDA-Public Use
  Company Number: US-BRISTOL-MYERS SQUIBB COMPANY-14072086

PATIENT
  Age: 68 Year
  Sex: Female

DRUGS (4)
  1. CELEXA [Concomitant]
     Route: 048
  2. IPILIMUMAB [Suspect]
     Indication: MALIGNANT MELANOMA
     Route: 042
     Dates: start: 20071022, end: 20071114
  3. PROTONIX [Concomitant]
     Route: 048
  4. PREDNISONE TAB [Concomitant]
     Route: 048

REACTIONS (2)
  - DIARRHOEA [None]
  - VOMITING [None]
